FAERS Safety Report 9768001 (Version 1)
Quarter: 2013Q4

REPORT INFORMATION
  Report Type: Spontaneous
  Country: US (occurrence: None)
  Receive Date: 20131217
  Receipt Date: 20131217
  Transmission Date: 20140711
  Serious: Yes (Life-Threatening)
  Sender: FDA-Public Use
  Company Number: 2012BAX009248

PATIENT
  Age: 67 Year
  Sex: Female
  Weight: 55 kg

DRUGS (1)
  1. GAMMAGARD LIQUID [Suspect]
     Indication: IMMUNODEFICIENCY COMMON VARIABLE
     Dosage: 10 GM (10 GM, 1 IN 1 ONCE), INTRAVENOUS? ? ? ? ?

REACTIONS (6)
  - Angioedema [None]
  - Hypertension [None]
  - Rash [None]
  - Headache [None]
  - Urticaria [None]
  - Hypersensitivity [None]
